FAERS Safety Report 18671192 (Version 2)
Quarter: 2020Q4

REPORT INFORMATION
  Report Type: Spontaneous
  Country: US (occurrence: US)
  Receive Date: 20201228
  Receipt Date: 20201229
  Transmission Date: 20210114
  Serious: Yes (Other)
  Sender: FDA-Public Use
  Company Number: US-PFIZER INC-2019149057

PATIENT
  Age: 79 Year
  Sex: Female
  Weight: 90.72 kg

DRUGS (3)
  1. LYRICA [Suspect]
     Active Substance: PREGABALIN
     Indication: FIBROMYALGIA
     Dosage: 75 MG, TWICE A DAY (TAKE 1 CAPSULE (75 MG TOTAL) BY MOUTH 2 TIMES DAILY)
     Route: 048
  2. LYRICA [Suspect]
     Active Substance: PREGABALIN
     Indication: NEURALGIA
  3. LYRICA [Suspect]
     Active Substance: PREGABALIN
     Indication: TRIGEMINAL NEURALGIA
     Dosage: 75 MG, THREE TIMES A DAY
     Route: 048
     Dates: end: 201901

REACTIONS (3)
  - Pain [Unknown]
  - Prescription drug used without a prescription [Unknown]
  - Suicide attempt [Unknown]

NARRATIVE: CASE EVENT DATE: 201901
